FAERS Safety Report 7650933-8 (Version None)
Quarter: 2011Q3

REPORT INFORMATION
  Report Type: 
  Country: None (occurrence: None)
  Receive Date: 20110802
  Receipt Date: 20110711
  Transmission Date: 20111222
  Serious: No
  Sender: FDA-Public Use
  Company Number: US-BAYER-2011-060392

PATIENT
  Age: 45 Year
  Sex: Female

DRUGS (1)
  1. BEYAZ [Suspect]
     Indication: ORAL CONTRACEPTION
     Dosage: UNK
     Route: 048
     Dates: start: 20110601

REACTIONS (1)
  - WEIGHT INCREASED [None]
